FAERS Safety Report 8547457-2 (Version None)
Quarter: 2012Q3

REPORT INFORMATION
  Report Type: 
  Country: None (occurrence: None)
  Receive Date: 20120727
  Receipt Date: 20120417
  Transmission Date: 20120928
  Serious: No
  Sender: FDA-Public Use
  Company Number: US-ASTRAZENECA-2012SE25439

PATIENT
  Age: 28 Year
  Sex: Male
  Weight: 86.2 kg

DRUGS (1)
  1. SEROQUEL [Suspect]
     Indication: POST-TRAUMATIC STRESS DISORDER
     Route: 048
     Dates: start: 20100801, end: 20120401

REACTIONS (4)
  - ANXIETY [None]
  - INTENTIONAL DRUG MISUSE [None]
  - FEELING ABNORMAL [None]
  - OFF LABEL USE [None]
